FAERS Safety Report 9547927 (Version 7)
Quarter: 2015Q1

REPORT INFORMATION
  Report Type: Report from Study
  Country: JP (occurrence: JP)
  Receive Date: 20130924
  Receipt Date: 20150312
  Transmission Date: 20150721
  Serious: Yes (Hospitalization, Other)
  Sender: FDA-Public Use
  Company Number: JP-JNJFOC-20130907951

PATIENT
  Age: 61 Year
  Sex: Male

DRUGS (31)
  1. TIGASON [Concomitant]
     Active Substance: ETRETINATE
     Indication: PUSTULAR PSORIASIS
     Route: 048
     Dates: start: 20110117, end: 20110530
  2. ALLEGRA [Concomitant]
     Active Substance: FEXOFENADINE HYDROCHLORIDE
     Indication: PUSTULAR PSORIASIS
     Route: 048
  3. STELARA [Suspect]
     Active Substance: USTEKINUMAB
     Indication: PUSTULAR PSORIASIS
     Route: 058
     Dates: start: 20111207, end: 20111207
  4. STELARA [Suspect]
     Active Substance: USTEKINUMAB
     Indication: PUSTULAR PSORIASIS
     Route: 058
     Dates: start: 20120913, end: 20120913
  5. TAKEPRON [Concomitant]
     Active Substance: LANSOPRAZOLE
     Indication: GASTROOESOPHAGEAL REFLUX DISEASE
     Route: 048
  6. MYSER [Suspect]
     Active Substance: DIFLUPREDNATE
     Indication: PUSTULAR PSORIASIS
     Route: 061
     Dates: start: 20110315
  7. TIGASON [Concomitant]
     Active Substance: ETRETINATE
     Indication: PUSTULAR PSORIASIS
     Route: 048
     Dates: start: 20110725, end: 20111207
  8. LOCOID [Concomitant]
     Active Substance: HYDROCORTISONE BUTYRATE
     Indication: PUSTULAR PSORIASIS
     Route: 061
     Dates: start: 20110928
  9. STELARA [Suspect]
     Active Substance: USTEKINUMAB
     Indication: PUSTULAR PSORIASIS
     Route: 058
     Dates: start: 20120229, end: 20120229
  10. STELARA [Suspect]
     Active Substance: USTEKINUMAB
     Indication: PUSTULAR PSORIASIS
     Route: 058
     Dates: start: 20130228, end: 20130228
  11. RHEUMATREX [Suspect]
     Active Substance: METHOTREXATE SODIUM
     Indication: PUSTULAR PSORIASIS
     Route: 048
     Dates: start: 20110329
  12. PREDONINE [Suspect]
     Active Substance: PREDNISOLONE\PREDNISOLONE ACETATE\PREDNISOLONE SODIUM SUCCINATE
     Indication: PEMPHIGOID
     Route: 065
     Dates: start: 20130711
  13. TIGASON [Concomitant]
     Active Substance: ETRETINATE
     Indication: PUSTULAR PSORIASIS
     Route: 048
     Dates: start: 20111208, end: 20120201
  14. RIVOTRIL [Concomitant]
     Active Substance: CLONAZEPAM
     Indication: PRODUCT USED FOR UNKNOWN INDICATION
     Route: 048
  15. JUVELA N [Concomitant]
     Active Substance: TOCOPHERYL NICOTINATE, D-.ALPHA.
     Indication: PRODUCT USED FOR UNKNOWN INDICATION
     Route: 048
  16. MINOMYCIN [Concomitant]
     Active Substance: MINOCYCLINE HYDROCHLORIDE
     Indication: PEMPHIGOID
     Route: 065
     Dates: start: 20130502
  17. STELARA [Suspect]
     Active Substance: USTEKINUMAB
     Indication: PUSTULAR PSORIASIS
     Route: 058
     Dates: start: 20121206, end: 20121206
  18. PREDONINE [Suspect]
     Active Substance: PREDNISOLONE\PREDNISOLONE ACETATE\PREDNISOLONE SODIUM SUCCINATE
     Indication: PEMPHIGOID
     Route: 065
     Dates: start: 20130620, end: 20130710
  19. MAGLAX [Concomitant]
     Active Substance: MAGNESIUM OXIDE
     Indication: CONSTIPATION
     Route: 048
  20. TIGASON [Concomitant]
     Active Substance: ETRETINATE
     Indication: PUSTULAR PSORIASIS
     Route: 048
     Dates: start: 20120202
  21. URSO [Concomitant]
     Active Substance: URSODIOL
     Indication: CHOLECYSTITIS
     Route: 048
  22. MUCOSTA [Concomitant]
     Active Substance: REBAMIPIDE
     Indication: CHRONIC GASTRITIS
     Route: 048
  23. STELARA [Suspect]
     Active Substance: USTEKINUMAB
     Indication: PUSTULAR PSORIASIS
     Route: 058
     Dates: start: 20120620, end: 20120620
  24. FOLIAMIN [Concomitant]
     Active Substance: FOLIC ACID
     Indication: PUSTULAR PSORIASIS
     Route: 048
  25. STELARA [Suspect]
     Active Substance: USTEKINUMAB
     Indication: PUSTULAR PSORIASIS
     Route: 058
     Dates: start: 20110818, end: 20110818
  26. STELARA [Suspect]
     Active Substance: USTEKINUMAB
     Indication: PUSTULAR PSORIASIS
     Route: 058
     Dates: start: 20110915, end: 20110915
  27. GLYCYRON [Concomitant]
     Active Substance: AMMONIUM GLYCYRRHIZATE\GLYCINE\METHIONINE
     Indication: CHOLECYSTITIS
     Dosage: 6 DF
     Route: 048
  28. CEREDIST [Concomitant]
     Active Substance: TALTIRELIN
     Indication: MULTIPLE SYSTEM ATROPHY
     Route: 048
  29. MOBIC [Concomitant]
     Active Substance: MELOXICAM
     Indication: PUSTULAR PSORIASIS
     Route: 048
  30. RINDERON VG [Concomitant]
     Active Substance: BETAMETHASONE VALERATE\GENTAMICIN SULFATE
     Indication: PUSTULAR PSORIASIS
     Route: 061
     Dates: start: 20110928
  31. TIGASON [Concomitant]
     Active Substance: ETRETINATE
     Indication: PUSTULAR PSORIASIS
     Route: 048
     Dates: start: 20100607, end: 20110116

REACTIONS (7)
  - Fall [Recovered/Resolved]
  - Cellulitis [Recovered/Resolved]
  - Injury [Recovered/Resolved]
  - Pneumonia [Unknown]
  - Cellulitis [Recovered/Resolved]
  - Pemphigoid [Recovered/Resolved]
  - Tinea versicolour [Recovered/Resolved]

NARRATIVE: CASE EVENT DATE: 20110915
